FAERS Safety Report 9792125 (Version 1)
Quarter: 2013Q4

REPORT INFORMATION
  Report Type: Spontaneous
  Country: US (occurrence: None)
  Receive Date: 20131230
  Receipt Date: 20131230
  Transmission Date: 20140711
  Serious: Yes (Other)
  Sender: FDA-Public Use
  Company Number: 2013HINOTH0347

PATIENT
  Age: 20 Year
  Sex: Female

DRUGS (3)
  1. LAMIVUDINE + ZIDOVUDINE [Suspect]
     Indication: ANTIRETROVIRAL THERAPY
     Route: 048
  2. VIRACEPT (NELFINAVIR) [Concomitant]
  3. KALETRA, ALUVIA (LOPINAVIR+RITONAVIR) [Concomitant]

REACTIONS (2)
  - Pyelocaliectasis [None]
  - Maternal exposure during pregnancy [None]
